FAERS Safety Report 4450319-3 (Version None)
Quarter: 2004Q3

REPORT INFORMATION
  Report Type: 
  Country: None (occurrence: None)
  Receive Date: 20040914
  Receipt Date: 20040907
  Transmission Date: 20050211
  Serious: Yes (Hospitalization)
  Sender: FDA-Public Use
  Company Number: ES-JNJFOC-20040902728

PATIENT
  Age: 4 Year
  Sex: Female

DRUGS (2)
  1. IBUPROFEN [Suspect]
     Indication: PYREXIA
  2. ANTIPYRETICS  (ANTIPYRETICS) [Concomitant]

REACTIONS (10)
  - ABSCESS SOFT TISSUE [None]
  - BETA HAEMOLYTIC STREPTOCOCCAL INFECTION [None]
  - HAEMATOCRIT DECREASED [None]
  - HAEMOGLOBIN DECREASED [None]
  - IMMUNOLOGY TEST ABNORMAL [None]
  - IMPAIRED HEALING [None]
  - NECROTISING FASCIITIS STREPTOCOCCAL [None]
  - STREPTOCOCCAL BACTERAEMIA [None]
  - SUPERINFECTION [None]
  - WOUND INFECTION STAPHYLOCOCCAL [None]
